FAERS Safety Report 26213670 (Version 1)
Quarter: 2025Q4

REPORT INFORMATION
  Report Type: Spontaneous
  Country: RU (occurrence: RU)
  Receive Date: 20251230
  Receipt Date: 20251230
  Transmission Date: 20260117
  Serious: Yes (Life-Threatening, Other)
  Sender: CLINIGEN
  Company Number: RU-CLINIGEN-CLI2025000222

PATIENT

DRUGS (6)
  1. FOSCARNET SODIUM [Suspect]
     Active Substance: FOSCARNET SODIUM
     Indication: Cytomegalovirus infection
     Dosage: 180 MG/KG
     Route: 042
     Dates: start: 20251106, end: 20251127
  2. GANCICLOVIR [Suspect]
     Active Substance: GANCICLOVIR
     Indication: Cytomegalovirus viraemia
     Dosage: UNK
     Route: 065
     Dates: start: 20251024
  3. FLUCONAZOLE [Concomitant]
     Active Substance: FLUCONAZOLE
     Indication: Supportive care
     Dosage: 280 MILLIGRAM, TID
     Route: 065
     Dates: start: 20250921
  4. BUDESONIDE [Concomitant]
     Active Substance: BUDESONIDE
     Indication: Graft versus host disease
     Dosage: 150 MILLIGRAM, QD
     Route: 065
     Dates: start: 20250820
  5. RUXOLITINIB [Concomitant]
     Active Substance: RUXOLITINIB
     Indication: Graft versus host disease
     Dosage: 5 MILLIGRAM, BID
     Route: 065
     Dates: start: 20250829
  6. OMEPRAZOLE [Concomitant]
     Active Substance: OMEPRAZOLE
     Indication: Supportive care
     Dosage: 40 MILLIGRAM, QD
     Route: 065
     Dates: start: 20250820

REACTIONS (1)
  - Cystitis haemorrhagic [Recovered/Resolved]

NARRATIVE: CASE EVENT DATE: 20251120
